FAERS Safety Report 12690443 (Version 1)
Quarter: 2016Q3

REPORT INFORMATION
  Report Type: Report from Study
  Country: IT (occurrence: IT)
  Receive Date: 20160826
  Receipt Date: 20160826
  Transmission Date: 20161109
  Serious: Yes (Death)
  Sender: FDA-Public Use
  Company Number: IT-ABBVIE-16P-083-1707360-00

PATIENT
  Age: 71 Year
  Sex: Female

DRUGS (1)
  1. DUODOPA [Suspect]
     Active Substance: CARBIDOPA\LEVODOPA
     Indication: PARKINSON^S DISEASE
     Dosage: MD 8 +3?CR 2,7?ED 3,5
     Route: 050
     Dates: start: 20150304, end: 20160812

REACTIONS (1)
  - Cardiac arrest [Fatal]

NARRATIVE: CASE EVENT DATE: 20160812
